FAERS Safety Report 9008221 (Version 4)
Quarter: 2013Q4

REPORT INFORMATION
  Report Type: Spontaneous
  Country: IE (occurrence: IE)
  Receive Date: 20130111
  Receipt Date: 20131217
  Transmission Date: 20140711
  Serious: Yes (Death, Hospitalization)
  Sender: FDA-Public Use
  Company Number: PHFR2012IE002030

PATIENT
  Age: 76 Year
  Sex: Female

DRUGS (7)
  1. CLOZARIL [Suspect]
     Indication: SCHIZOPHRENIA
     Dosage: UNK
     Route: 048
     Dates: start: 20070828
  2. PREDNISOLONE [Concomitant]
  3. ARICEPT [Concomitant]
  4. SERETIDE [Concomitant]
  5. PULMICORT [Concomitant]
  6. SALBUTAMOL [Concomitant]
  7. PROTEINS NOS [Concomitant]

REACTIONS (8)
  - Chronic obstructive pulmonary disease [Fatal]
  - Respiratory disorder [Fatal]
  - Cyanosis [Fatal]
  - Dyspnoea [Fatal]
  - Respiratory failure [Fatal]
  - Hallucination, auditory [Recovered/Resolved]
  - Pneumonia [Recovered/Resolved]
  - Lower respiratory tract infection [Recovered/Resolved]
